FAERS Safety Report 19447769 (Version 1)
Quarter: 2021Q2

REPORT INFORMATION
  Report Type: Spontaneous
  Country: JP (occurrence: JP)
  Receive Date: 20210622
  Receipt Date: 20210622
  Transmission Date: 20210717
  Serious: Yes (Hospitalization)
  Sender: FDA-Public Use
  Company Number: JP-ASTELLAS-2021JP011707

PATIENT
  Age: 70 Year
  Sex: Male

DRUGS (1)
  1. XTANDI [Suspect]
     Active Substance: ENZALUTAMIDE
     Indication: PROSTATE CANCER
     Route: 048
     Dates: start: 20210422, end: 20210530

REACTIONS (10)
  - Dizziness [Unknown]
  - Pyrexia [Unknown]
  - Monocyte count increased [Unknown]
  - Blood test abnormal [Unknown]
  - Pyrexia [Unknown]
  - Prostatic specific antigen increased [Unknown]
  - Malaise [Unknown]
  - Blood bilirubin increased [Unknown]
  - Infection [Unknown]
  - White blood cell count increased [Unknown]

NARRATIVE: CASE EVENT DATE: 202104
